FAERS Safety Report 10609467 (Version 1)
Quarter: 2014Q4

REPORT INFORMATION
  Report Type: Spontaneous
  Country: US (occurrence: US)
  Receive Date: 20141126
  Receipt Date: 20141126
  Transmission Date: 20150529
  Serious: Yes (Other)
  Sender: FDA-Public Use
  Company Number: US-BIOGENIDEC-2014BI122894

PATIENT
  Sex: Female

DRUGS (1)
  1. TECFIDERA [Suspect]
     Active Substance: DIMETHYL FUMARATE
     Indication: PRODUCT USED FOR UNKNOWN INDICATION
     Dates: start: 20140901, end: 20141001

REACTIONS (10)
  - Headache [Unknown]
  - Abdominal pain upper [Unknown]
  - Mastectomy [Recovered/Resolved]
  - Alopecia [Not Recovered/Not Resolved]
  - Pyrexia [Unknown]
  - Erythema [Unknown]
  - Pruritus [Unknown]
  - Thyroid disorder [Unknown]
  - Abdominal distension [Unknown]
  - Flushing [Unknown]
